FAERS Safety Report 19270333 (Version 1)
Quarter: 2021Q2

REPORT INFORMATION
  Report Type: Spontaneous
  Country: CN (occurrence: CN)
  Receive Date: 20210518
  Receipt Date: 20210518
  Transmission Date: 20210717
  Serious: Yes (Hospitalization)
  Sender: FDA-Public Use
  Company Number: CN-OTSUKA-2021_016562

PATIENT
  Age: 79 Year
  Sex: Male
  Weight: 53 kg

DRUGS (2)
  1. SAMSCA [Suspect]
     Active Substance: TOLVAPTAN
     Indication: LEFT VENTRICULAR FAILURE
     Dosage: 15 MG, QD
     Route: 048
     Dates: start: 20210510, end: 20210510
  2. AMIODARONE HYDROCHLORIDE. [Suspect]
     Active Substance: AMIODARONE HYDROCHLORIDE
     Indication: ARRHYTHMIA
     Dosage: 0.2 G, TID
     Route: 048
     Dates: start: 20210508, end: 20210509

REACTIONS (2)
  - Product use in unapproved indication [Unknown]
  - Liver injury [Unknown]

NARRATIVE: CASE EVENT DATE: 20210510
